FAERS Safety Report 6176751-8 (Version None)
Quarter: 2009Q2

REPORT INFORMATION
  Report Type: 
  Country: None (occurrence: None)
  Receive Date: 20090501
  Receipt Date: 20090419
  Transmission Date: 20091009
  Serious: Yes (Other)
  Sender: FDA-Public Use
  Company Number: US-ROCHE-628542

PATIENT
  Sex: Male

DRUGS (1)
  1. XELODA [Suspect]
     Route: 065

REACTIONS (1)
  - NEOPLASM RECURRENCE [None]
